FAERS Safety Report 10979913 (Version 6)
Quarter: 2016Q3

REPORT INFORMATION
  Report Type: Report from Study
  Country: US (occurrence: US)
  Receive Date: 20150402
  Receipt Date: 20160921
  Transmission Date: 20161109
  Serious: Yes (Death, Other)
  Sender: FDA-Public Use
  Company Number: US-ARIAD PHARMACEUTICALS, INC-2015US004663

PATIENT

DRUGS (3)
  1. ICLUSIG [Suspect]
     Active Substance: PONATINIB
     Indication: CHRONIC MYELOID LEUKAEMIA
     Dosage: 15 MG, QD
     Route: 048
     Dates: start: 20150223
  2. TRAMADOL. [Concomitant]
     Active Substance: TRAMADOL
     Indication: HEADACHE
  3. OXYCODONE HYDROCHLORIDE. [Concomitant]
     Active Substance: OXYCODONE HYDROCHLORIDE
     Indication: HEADACHE
     Dosage: UNK

REACTIONS (17)
  - Leg amputation [Unknown]
  - Productive cough [Unknown]
  - Dyspnoea [Unknown]
  - Death [Fatal]
  - Bone pain [Not Recovered/Not Resolved]
  - Fatigue [Unknown]
  - Palpitations [Unknown]
  - Asthenia [Unknown]
  - Anaemia [Unknown]
  - Headache [Not Recovered/Not Resolved]
  - Oedema peripheral [Unknown]
  - Pyrexia [Unknown]
  - Nausea [Unknown]
  - Hypertension [Not Recovered/Not Resolved]
  - Dizziness [Unknown]
  - Chest discomfort [Unknown]
  - Constipation [Not Recovered/Not Resolved]

NARRATIVE: CASE EVENT DATE: 20150311
